FAERS Safety Report 9882719 (Version 4)
Quarter: 2014Q2

REPORT INFORMATION
  Report Type: Report from Study
  Country: US (occurrence: US)
  Receive Date: 20140207
  Receipt Date: 20140409
  Transmission Date: 20141212
  Serious: Yes (Death, Life-Threatening, Hospitalization)
  Sender: FDA-Public Use
  Company Number: US-MERCK-1402USA002618

PATIENT
  Age: 51 Year
  Sex: Female
  Weight: 62.59 kg

DRUGS (6)
  1. VORINOSTAT [Suspect]
     Indication: ACUTE MYELOID LEUKAEMIA
     Dosage: 500 MG, TID (DAYS 1-3), CYCLE: 4, CYCLE: 28 DAYS
     Route: 048
     Dates: start: 20140113, end: 20140115
  2. VORINOSTAT [Suspect]
     Dosage: 500 MG, TID, DAYS 1-3, CYCLE: 1, CYCLE: 28 DAYS
     Route: 048
     Dates: start: 20130823, end: 20130825
  3. CYTARABINE [Suspect]
     Indication: ACUTE MYELOID LEUKAEMIA
     Dosage: 750 MG/M2, ON DAYS 4-6, CYCLE: 4, CYCLE: 28 DAYS
     Route: 042
     Dates: start: 20140116, end: 20140118
  4. CYTARABINE [Suspect]
     Dosage: 1500MG/M2/DAY ON DAYS 4-7, CYCLE: 1, CYCLE: 28 DAYS
     Route: 042
     Dates: start: 20130826, end: 20130829
  5. IDARUBICIN [Suspect]
     Indication: ACUTE MYELOID LEUKAEMIA
     Dosage: 8 MG/M2/DAY ON DAYS 4-5, CYCLE: 4, EACH CYCLE: 28 DAYS
     Route: 042
     Dates: start: 20140116, end: 20140117
  6. IDARUBICIN [Suspect]
     Dosage: 12MG/M2/DAY ON DAYS 4-6, CYCLE: 1, EACH CYCLE: 28 DAYS
     Route: 042
     Dates: start: 20130826, end: 20130828

REACTIONS (9)
  - Sepsis [Fatal]
  - Respiratory failure [Unknown]
  - Febrile neutropenia [Not Recovered/Not Resolved]
  - Colitis [Unknown]
  - Abdominal pain [Recovered/Resolved]
  - Diarrhoea [Recovered/Resolved]
  - Confusional state [Not Recovered/Not Resolved]
  - Hypoxia [Not Recovered/Not Resolved]
  - Hypotension [Recovered/Resolved]
